FAERS Safety Report 7841814-5 (Version None)
Quarter: 2011Q4

REPORT INFORMATION
  Report Type: 
  Country: None (occurrence: None)
  Receive Date: 20111025
  Receipt Date: 20111017
  Transmission Date: 20120403
  Serious: Yes (Other)
  Sender: FDA-Public Use
  Company Number: GB-JNJFOC-20111009023

PATIENT
  Age: 60 Year

DRUGS (1)
  1. VORICONAZOLE [Suspect]
     Indication: ASPERGILLOSIS
     Route: 065

REACTIONS (2)
  - HYPOAESTHESIA [None]
  - DRUG LEVEL INCREASED [None]
